FAERS Safety Report 8006255-9 (Version None)
Quarter: 2011Q4

REPORT INFORMATION
  Report Type: 
  Country: None (occurrence: None)
  Receive Date: 20111226
  Receipt Date: 20111216
  Transmission Date: 20120403
  Serious: Yes (Other)
  Sender: FDA-Public Use
  Company Number: PHHY2011FR111773

PATIENT
  Sex: Female

DRUGS (14)
  1. POLYETHYLENE GLYCOL [Concomitant]
     Dosage: 1 DF IN THE MORNING
     Dates: start: 20111103
  2. KABIVEN [Concomitant]
     Dosage: 1 BAG PER DAY
     Dates: start: 20111117
  3. INNOHEP [Concomitant]
     Dates: start: 20111118
  4. PRIMPERAN TAB [Concomitant]
     Dosage: 1 DF, TID,10 MG IN THE MORNING, 10 MG AT LUNCH AND 10 MG AT 6.00 PM
     Dates: start: 20111117
  5. ALDACTONE [Concomitant]
     Dosage: 50 MG IN THE MORNING
     Dates: start: 20111124
  6. FERROUS FUMARATE [Concomitant]
     Dosage: 1 DF, BID,66 MG IN THE MORNING AND 66 MG AT 6.00 PM
     Dates: start: 20111031
  7. ACETAMINOPHEN AND CODEINE PHOSPHATE [Concomitant]
     Dosage: 2 TABLETS EVERY 8 HOURS (IF NEEDED)
     Dates: start: 20111101
  8. FUROSEMIDE [Concomitant]
     Dosage: 2 VIALS IN THE MORNING
     Dates: start: 20111121
  9. DECAN [Concomitant]
     Dosage: 40 MG DAILY DOSE
     Dates: start: 20111028
  10. GEMCITABINE [Suspect]
     Route: 042
     Dates: start: 20111121, end: 20111121
  11. METHYLPREDNISOLONE [Suspect]
     Route: 042
     Dates: start: 20111121, end: 20111121
  12. CHLORURE DE SODIUM [Concomitant]
     Dates: start: 20111121, end: 20111121
  13. CERNEVIT-12 [Concomitant]
     Dates: start: 20111028
  14. ATARAX [Concomitant]
     Dosage: 1 DF AT BEDTIME IF NEEDED
     Dates: start: 20111122

REACTIONS (1)
  - ERYTHEMA [None]
